FAERS Safety Report 16800073 (Version 1)
Quarter: 2019Q3

REPORT INFORMATION
  Report Type: Spontaneous
  Country: US (occurrence: US)
  Receive Date: 20190912
  Receipt Date: 20190912
  Transmission Date: 20191005
  Serious: No
  Sender: FDA-Public Use
  Company Number: US-ASTELLAS-2018US041902

PATIENT
  Age: 85 Year
  Sex: Male

DRUGS (1)
  1. XTANDI [Suspect]
     Active Substance: ENZALUTAMIDE
     Indication: PROSTATE CANCER STAGE IV
     Dosage: 160 MG, ONCE DAILY (FOUR CAPSULES OF 40 MG)
     Route: 048
     Dates: start: 20170721

REACTIONS (3)
  - Product storage error [Unknown]
  - Product physical issue [Unknown]
  - Poor quality product administered [Unknown]
